FAERS Safety Report 7815706-1 (Version None)
Quarter: 2011Q4

REPORT INFORMATION
  Report Type: 
  Country: None (occurrence: None)
  Receive Date: 20111012
  Receipt Date: 20110920
  Transmission Date: 20120403
  Serious: Yes (Hospitalization)
  Sender: FDA-Public Use
  Company Number: 2011PROUSA00624

PATIENT
  Age: 71 Year
  Sex: Male
  Weight: 110 kg

DRUGS (15)
  1. PROVENGE [Suspect]
     Indication: PROSTATE CANCER METASTATIC
     Dosage: 250 ML, SINGLE, INTRAVENOUS
     Route: 042
     Dates: start: 20110603, end: 20110603
  2. PROVENGE [Suspect]
     Indication: PROSTATE CANCER METASTATIC
     Dosage: 250 ML, SINGLE, INTRAVENOUS
     Route: 042
     Dates: start: 20110617, end: 20110617
  3. ALLOPURINOL [Concomitant]
  4. GLIPIZIDE [Concomitant]
  5. MYLANTA	/00036701/ (ALUMINIUM HYDROXIDE GEL, DRIED, MAGNESIUM HYDROXID [Concomitant]
  6. CRESTOR [Concomitant]
  7. DIOVAN [Concomitant]
  8. FLOMAX	/00889901/ (MORNIFLUMATE) [Concomitant]
  9. PROVENGE [Suspect]
  10. CASODEX [Concomitant]
  11. FERROUS SULFATE TAB [Concomitant]
  12. LEXAPRO [Concomitant]
  13. FOLIC ACID [Concomitant]
  14. METFORMIN HCL [Concomitant]
  15. DULCOLAX /00064401/ (BISACODYL) [Concomitant]

REACTIONS (10)
  - FALL [None]
  - HAEMOGLOBIN DECREASED [None]
  - METASTASES TO BONE [None]
  - VOMITING [None]
  - OESOPHAGITIS [None]
  - BLOOD GLUCOSE INCREASED [None]
  - HAEMATOCRIT DECREASED [None]
  - RED BLOOD CELL COUNT DECREASED [None]
  - MUSCULAR WEAKNESS [None]
  - BLOOD SODIUM DECREASED [None]
